FAERS Safety Report 21297706 (Version 1)
Quarter: 2022Q3

REPORT INFORMATION
  Report Type: Spontaneous
  Country: US (occurrence: US)
  Receive Date: 20220906
  Receipt Date: 20220906
  Transmission Date: 20221026
  Serious: Yes (Other)
  Sender: FDA-Public Use
  Company Number: US-MYLANLABS-2022M1090784

PATIENT
  Age: 14 Year
  Sex: Female
  Weight: 102.3 kg

DRUGS (2)
  1. PREDNISONE [Suspect]
     Active Substance: PREDNISONE
     Indication: Evans syndrome
     Dosage: 1 MILLIGRAM/KILOGRAM, QD
     Route: 065
  2. PREDNISONE [Suspect]
     Active Substance: PREDNISONE
     Dosage: 0.2 MILLIGRAM/KILOGRAM, QD, DOSE OF PREDNISONE WAS RAPIDLY DECREASED TO 0.2 MG/KG/DAY.
     Route: 065

REACTIONS (2)
  - Steroid diabetes [Unknown]
  - Weight increased [Unknown]
